FAERS Safety Report 18072961 (Version 3)
Quarter: 2021Q1

REPORT INFORMATION
  Report Type: Spontaneous
  Country: US (occurrence: US)
  Receive Date: 20200727
  Receipt Date: 20210315
  Transmission Date: 20210419
  Serious: Yes (Other)
  Sender: FDA-Public Use
  Company Number: US-GLAXOSMITHKLINE-US2020142257

PATIENT
  Sex: Male

DRUGS (12)
  1. ZANTAC [Suspect]
     Active Substance: RANITIDINE HYDROCHLORIDE
     Dosage: UNK
  2. RANITIDINE. [Suspect]
     Active Substance: RANITIDINE
     Indication: DYSPEPSIA
     Dosage: 150 MG, QD
     Route: 065
     Dates: start: 200710, end: 201906
  3. RANITIDINE CAPSULE [Suspect]
     Active Substance: RANITIDINE
     Indication: GASTRINOMA
     Dosage: 150 MG, QD
     Route: 065
     Dates: start: 200710, end: 201906
  4. RANITIDINE. [Suspect]
     Active Substance: RANITIDINE
     Indication: GASTRINOMA
     Dosage: UNK
  5. RANITIDINE. [Suspect]
     Active Substance: RANITIDINE
     Indication: GASTRINOMA
     Dosage: UNK
  6. ZANTAC [Suspect]
     Active Substance: RANITIDINE HYDROCHLORIDE
     Indication: DYSPEPSIA
     Dosage: 75 MG OVER THE COUNTER
     Route: 065
     Dates: start: 200710, end: 201906
  7. ZANTAC [Suspect]
     Active Substance: RANITIDINE HYDROCHLORIDE
     Indication: GASTRINOMA
     Dosage: 150 MG, QD
     Route: 065
     Dates: start: 200710, end: 201906
  8. RANITIDINE CAPSULE [Suspect]
     Active Substance: RANITIDINE
     Indication: DYSPEPSIA
     Dosage: 150 MG BOTH
     Route: 065
     Dates: start: 200710, end: 201906
  9. ZANTAC [Suspect]
     Active Substance: RANITIDINE HYDROCHLORIDE
     Dates: start: 20071015, end: 20190615
  10. RANITIDINE. [Suspect]
     Active Substance: RANITIDINE
     Indication: DYSPEPSIA
     Dosage: 150 MG, QD
     Route: 065
     Dates: start: 200710, end: 201906
  11. RANITIDINE. [Suspect]
     Active Substance: RANITIDINE
     Indication: GASTRINOMA
     Dosage: UNK
  12. RANITIDINE. [Suspect]
     Active Substance: RANITIDINE
     Indication: DYSPEPSIA
     Dosage: 150 MG, QD
     Route: 065
     Dates: start: 200710, end: 201906

REACTIONS (1)
  - Bladder cancer [Unknown]
